FAERS Safety Report 9801624 (Version 1)
Quarter: 2014Q1

REPORT INFORMATION
  Report Type: Report from Study
  Country: CA (occurrence: CA)
  Receive Date: 20140107
  Receipt Date: 20140107
  Transmission Date: 20141002
  Serious: Yes (Other)
  Sender: FDA-Public Use
  Company Number: CA-US-EMD SERONO, INC.-7261185

PATIENT
  Sex: Male
  Weight: 64 kg

DRUGS (2)
  1. REBIF [Suspect]
     Indication: MULTIPLE SCLEROSIS
     Route: 058
     Dates: start: 19940701, end: 20120813
  2. REBIF [Suspect]

REACTIONS (2)
  - Rectal haemorrhage [Unknown]
  - Weight decreased [Unknown]
